FAERS Safety Report 22256140 (Version 1)
Quarter: 2023Q2

REPORT INFORMATION
  Report Type: Spontaneous
  Country: IT (occurrence: IT)
  Receive Date: 20230426
  Receipt Date: 20230426
  Transmission Date: 20230722
  Serious: Yes (Other)
  Sender: FDA-Public Use
  Company Number: None

PATIENT
  Age: 63 Year
  Sex: Female

DRUGS (8)
  1. EN [Suspect]
     Active Substance: DELORAZEPAM
     Indication: Product used for unknown indication
     Dosage: 50 DROP
     Route: 048
     Dates: start: 20221031
  2. LANSOPRAZOLE [Suspect]
     Active Substance: LANSOPRAZOLE
     Indication: Product used for unknown indication
     Dosage: 6 DOSAGE FORM
     Route: 048
     Dates: start: 20221031
  3. CHLORPROMAZINE [Suspect]
     Active Substance: CHLORPROMAZINE
     Indication: Product used for unknown indication
     Dosage: 6 DOSAGE FORM (100 MG LARGACTIL:TAKEN 6TABLET/TOT)
     Route: 048
     Dates: start: 20221031
  4. VALPROATE SODIUM [Suspect]
     Active Substance: VALPROATE SODIUM
     Indication: Product used for unknown indication
     Dosage: 10 DOSAGE FORM
     Route: 065
     Dates: start: 20221031
  5. HALDOL [Concomitant]
     Active Substance: HALOPERIDOL
     Dosage: UNK
     Route: 065
  6. LEVOTHYROXINE SODIUM [Concomitant]
     Active Substance: LEVOTHYROXINE SODIUM
     Dosage: UNK
     Route: 065
  7. LINAGLIPTIN [Concomitant]
     Active Substance: LINAGLIPTIN
     Dosage: UNK
     Route: 065
  8. HUMALOG [Concomitant]
     Active Substance: INSULIN LISPRO
     Dosage: UNK
     Route: 065

REACTIONS (2)
  - Drug abuse [Recovered/Resolved]
  - Sopor [Recovered/Resolved]

NARRATIVE: CASE EVENT DATE: 20221031
